FAERS Safety Report 20966469 (Version 1)
Quarter: 2022Q2

REPORT INFORMATION
  Report Type: Spontaneous
  Country: CA (occurrence: CA)
  Receive Date: 20220616
  Receipt Date: 20220616
  Transmission Date: 20220721
  Serious: Yes (Other)
  Sender: FDA-Public Use
  Company Number: CA-SAMSUNG BIOEPIS-SB-2022-14345

PATIENT
  Age: 38 Year
  Sex: Female
  Weight: 65 kg

DRUGS (1)
  1. INFLIXIMAB [Suspect]
     Active Substance: INFLIXIMAB
     Indication: Crohn^s disease
     Route: 042

REACTIONS (6)
  - Arthritis [Not Recovered/Not Resolved]
  - Asymptomatic COVID-19 [Recovered/Resolved]
  - Condition aggravated [Not Recovered/Not Resolved]
  - Hernia [Not Recovered/Not Resolved]
  - Inappropriate schedule of product administration [Not Recovered/Not Resolved]
  - Off label use [Not Recovered/Not Resolved]
